FAERS Safety Report 8796325 (Version 1)
Quarter: 2012Q4

REPORT INFORMATION
  Report Type: 
  Country: BR (occurrence: BR)
  Receive Date: 20120919
  Receipt Date: 20120919
  Transmission Date: 20130627
  Serious: Yes (Other)
  Sender: FDA-Public Use
  Company Number: BR-PFIZER INC-2012229714

PATIENT
  Age: 42 Year
  Sex: Female
  Weight: 57 kg

DRUGS (4)
  1. LYRICA [Suspect]
     Indication: PAIN
     Dosage: 150 mg, every 12 hours
     Route: 048
  2. PRISTIQ [Concomitant]
     Indication: ANTIDEPRESSANT THERAPY
     Dosage: 50 mg, 1x/day
     Dates: start: 201201
  3. CARBAMAZEPINE [Concomitant]
     Indication: CONFUSIONAL STATE
     Dosage: 200 mg, 1x/day
     Dates: start: 201207
  4. TYLEX [Concomitant]
     Indication: PAIN
     Dosage: 30 mg, every 6 hours
     Dates: start: 201201

REACTIONS (1)
  - Fibromyalgia [Not Recovered/Not Resolved]
